FAERS Safety Report 6545289-8 (Version None)
Quarter: 2010Q1

REPORT INFORMATION
  Report Type: 
  Country: None (occurrence: None)
  Receive Date: 20100121
  Receipt Date: 20100104
  Transmission Date: 20100710
  Serious: Yes (Death)
  Sender: FDA-Public Use
  Company Number: US-BAYER-201011713GPV

PATIENT
  Age: 48 Year
  Sex: Female

DRUGS (1)
  1. EXCEDRIN EXTRA STRENGTH [Suspect]
     Indication: DRUG USE FOR UNKNOWN INDICATION
     Dosage: APPROXIMATELY 30 TABLETS
     Route: 048

REACTIONS (7)
  - AGITATION [None]
  - CARDIAC ARREST [None]
  - DRUG TOXICITY [None]
  - MUSCLE SPASMS [None]
  - NAUSEA [None]
  - RESTLESSNESS [None]
  - VOMITING [None]
